FAERS Safety Report 5372699-7 (Version None)
Quarter: 2007Q2

REPORT INFORMATION
  Report Type: 
  Country: None (occurrence: None)
  Receive Date: 20070627
  Receipt Date: 20070620
  Transmission Date: 20071010
  Serious: Yes (Other)
  Sender: FDA-Public Use
  Company Number: JP-MERCK-0706USA03786

PATIENT
  Age: 50 Year
  Sex: Female

DRUGS (2)
  1. COZAAR [Suspect]
     Route: 048
     Dates: start: 20060601, end: 20060801
  2. VASOTEC [Suspect]
     Route: 048
     Dates: start: 20060601, end: 20060801

REACTIONS (1)
  - STEVENS-JOHNSON SYNDROME [None]
